APPROVED DRUG PRODUCT: AMOXICILLIN
Active Ingredient: AMOXICILLIN
Strength: 250MG
Dosage Form/Route: TABLET, CHEWABLE;ORAL
Application: A064013 | Product #001
Applicant: TEVA PHARMACEUTICALS USA INC
Approved: Dec 22, 1992 | RLD: No | RS: Yes | Type: RX